FAERS Safety Report 8424299-X (Version None)
Quarter: 2012Q2

REPORT INFORMATION
  Report Type: 
  Country: None (occurrence: None)
  Receive Date: 20120608
  Receipt Date: 20111124
  Transmission Date: 20120825
  Serious: No
  Sender: FDA-Public Use
  Company Number: US-ASTRAZENECA-2011SE65963

PATIENT
  Sex: Female

DRUGS (2)
  1. PULMICORT FLEXHALER [Suspect]
     Dosage: 2 PUFFS A DAY UPTO 6 PUFFS
     Route: 055
  2. PULMICORT FLEXHALER [Suspect]
     Route: 055

REACTIONS (9)
  - NAUSEA [None]
  - PAIN [None]
  - MALAISE [None]
  - ABDOMINAL PAIN UPPER [None]
  - APHAGIA [None]
  - ABDOMINAL DISTENSION [None]
  - GASTROINTESTINAL DISORDER [None]
  - VOMITING [None]
  - INCORRECT DOSE ADMINISTERED [None]
